FAERS Safety Report 23405264 (Version 1)
Quarter: 2024Q1

REPORT INFORMATION
  Report Type: Spontaneous
  Country: US (occurrence: None)
  Receive Date: 20240112
  Receipt Date: 20240112
  Transmission Date: 20240409
  Serious: Yes (Hospitalization)
  Sender: FDA-Public Use
  Company Number: None

PATIENT
  Age: 77 Year
  Sex: Female
  Weight: 78.75 kg

DRUGS (1)
  1. OZEMPIC [Suspect]
     Active Substance: SEMAGLUTIDE
     Indication: Diabetes mellitus
     Dates: start: 20220922, end: 20230506

REACTIONS (6)
  - Impaired gastric emptying [None]
  - Constipation [None]
  - Diarrhoea [None]
  - Cough [None]
  - Dyspnoea [None]
  - Renal impairment [None]

NARRATIVE: CASE EVENT DATE: 20221201
